FAERS Safety Report 6377050-1 (Version None)
Quarter: 2009Q3

REPORT INFORMATION
  Report Type: 
  Country: None (occurrence: None)
  Receive Date: 20090925
  Receipt Date: 20090914
  Transmission Date: 20100115
  Serious: Yes (Other)
  Sender: FDA-Public Use
  Company Number: CA-ELI_LILLY_AND_COMPANY-CA200909003364

PATIENT
  Age: 53 Year
  Sex: Female

DRUGS (6)
  1. CYMBALTA [Suspect]
     Indication: DRUG THERAPY
     Dosage: 60 MG, UNK
  2. CYMBALTA [Suspect]
     Dosage: 30 MG, UNK
  3. EFFEXOR [Concomitant]
     Dosage: 375 MG, UNK
  4. LITHIUM [Concomitant]
  5. LAMICTAL [Concomitant]
     Dosage: 200 MG, EACH EVENING
  6. SYNTHROID [Concomitant]

REACTIONS (6)
  - ANGER [None]
  - DEPRESSION [None]
  - DRUG WITHDRAWAL SYNDROME [None]
  - MYALGIA [None]
  - OFF LABEL USE [None]
  - SUICIDAL IDEATION [None]
